FAERS Safety Report 22368856 (Version 1)
Quarter: 2023Q2

REPORT INFORMATION
  Report Type: Spontaneous
  Country: US (occurrence: None)
  Receive Date: 20230525
  Receipt Date: 20230525
  Transmission Date: 20230722
  Serious: No
  Sender: FDA-Public Use
  Company Number: None

PATIENT
  Sex: Female

DRUGS (1)
  1. TALTZ [Suspect]
     Active Substance: IXEKIZUMAB
     Indication: Psoriasis
     Dosage: 80 MG SC??DOSE EVERY 2 WEEKS (WEEKS 4, 6, 8, 10). THEN STARTING AT WEEK 12, INJECT EVERY 4 WEEKS. ?
     Route: 058
     Dates: start: 202303

REACTIONS (1)
  - Drug ineffective [None]
